FAERS Safety Report 5055396-7 (Version None)
Quarter: 2006Q3

REPORT INFORMATION
  Report Type: 
  Country: None (occurrence: None)
  Receive Date: 20060719
  Receipt Date: 20060714
  Transmission Date: 20061208
  Serious: Yes (Death)
  Sender: FDA-Public Use
  Company Number: DE-BOEHRINGER INGELHEIM PHARMACEUTICALS, INC.-2006-DE-03616DE

PATIENT
  Sex: Male

DRUGS (2)
  1. SIFROL [Suspect]
  2. L-DOPA [Concomitant]

REACTIONS (1)
  - PULMONARY EMBOLISM [None]
